FAERS Safety Report 5007425-4 (Version None)
Quarter: 2006Q2

REPORT INFORMATION
  Report Type: 
  Country: None (occurrence: None)
  Receive Date: 20060518
  Receipt Date: 20060518
  Transmission Date: 20061013
  Serious: Yes (Hospitalization)
  Sender: FDA-Public Use
  Company Number: None

PATIENT
  Sex: Male

DRUGS (11)
  1. DILTIAZEM SA 120 MG [Suspect]
     Indication: ATRIAL FIBRILLATION
     Dosage: 120 MG DAILY PO
     Route: 048
     Dates: start: 20060316, end: 20060319
  2. ASPIRIN [Concomitant]
  3. CYCLOBENZAPRINE HCL [Concomitant]
  4. DIPHENHYDRAMINE HCL [Concomitant]
  5. DOCUSATE [Concomitant]
  6. LOVASTATIN [Concomitant]
  7. METFORMIN [Concomitant]
  8. MULTI-VITAMIN [Concomitant]
  9. OXYCODONE AND ACETAMINOPHEN [Concomitant]
  10. TERAZOSIN HCL [Concomitant]
  11. WARFARIN [Concomitant]

REACTIONS (2)
  - ANGIONEUROTIC OEDEMA [None]
  - RASH [None]
